FAERS Safety Report 6369742-5 (Version None)
Quarter: 2009Q3

REPORT INFORMATION
  Report Type: 
  Country: None (occurrence: None)
  Receive Date: 20090923
  Receipt Date: 20090910
  Transmission Date: 20100115
  Serious: Yes (Hospitalization, Other)
  Sender: FDA-Public Use
  Company Number: FR-BAYER-200927255GPV

PATIENT
  Age: 55 Year
  Sex: Male
  Weight: 87 kg

DRUGS (12)
  1. MABCAMPATH [Suspect]
     Indication: CHRONIC LYMPHOCYTIC LEUKAEMIA
     Dosage: AS USED: 30 MG
     Route: 058
     Dates: start: 20090427, end: 20090707
  2. MABCAMPATH [Suspect]
     Dosage: AS USED: 30 MG
     Route: 058
     Dates: start: 20090717
  3. DEXAMETHASONE [Suspect]
     Indication: CHRONIC LYMPHOCYTIC LEUKAEMIA
     Dosage: AS USED: 40 MG
     Route: 048
     Dates: start: 20090427, end: 20090709
  4. DEXAMETHASONE [Suspect]
     Dosage: AS USED: 40 MG
     Route: 048
     Dates: start: 20090717
  5. WELLVONE [Concomitant]
     Dosage: 1 SPOONFUL IN THE MORNING AND EVENING
  6. ZELITREX [Concomitant]
     Dosage: 1 IN THE MORNING
  7. OXACILLIN [Concomitant]
     Dosage: 1 MILLION UNITS/DAY
  8. TARDYFERON [Concomitant]
  9. ROVALCYTE [Concomitant]
     Indication: CYTOMEGALOVIRUS VIRAEMIA
     Dosage: TOTAL DAILY DOSE: 1800 MG
  10. INNOHEP [Concomitant]
  11. LORAMIC [Concomitant]
     Dosage: 1 TABLET
  12. LOCAL ANTIFUNGAL [Concomitant]
     Indication: ORAL FUNGAL INFECTION

REACTIONS (8)
  - CAMPYLOBACTER INFECTION [None]
  - CHILLS [None]
  - CYTOMEGALOVIRUS VIRAEMIA [None]
  - DEEP VEIN THROMBOSIS [None]
  - DIARRHOEA [None]
  - PULMONARY EMBOLISM [None]
  - PYREXIA [None]
  - SEPSIS [None]
